FAERS Safety Report 4288255-8 (Version None)
Quarter: 2004Q1

REPORT INFORMATION
  Report Type: 
  Country: None (occurrence: None)
  Receive Date: 20040205
  Receipt Date: 20040126
  Transmission Date: 20041129
  Serious: Yes (Other)
  Sender: FDA-Public Use
  Company Number: HQWYE571727JAN04

PATIENT
  Age: 43 Year
  Sex: Female

DRUGS (8)
  1. EFFEXOR [Suspect]
     Indication: ADJUSTMENT DISORDER
     Dosage: 75 MG 1X PER 1 DAY
     Route: 048
     Dates: start: 20030721, end: 20030701
  2. EFFEXOR [Suspect]
     Indication: ADJUSTMENT DISORDER
     Dosage: 75 MG 1X PER 1 DAY
     Route: 048
     Dates: start: 20030301, end: 20030818
  3. EFFEXOR [Suspect]
     Indication: ADJUSTMENT DISORDER
     Dosage: 75 MG 1X PER 1 DAY
     Route: 048
     Dates: start: 20030101
  4. EFFEXOR XR [Suspect]
     Indication: ADJUSTMENT DISORDER
     Dosage: 300 MG 1X PER 1 DAY
     Route: 048
     Dates: start: 20030101
  5. REMERON [Suspect]
     Indication: ADJUSTMENT DISORDER
     Dosage: 30-45 MG/DAY
     Dates: start: 20030301
  6. ORIFIL (VALPROATE SODIUM) [Concomitant]
  7. ATARAX [Concomitant]
  8. SEROQUEL [Concomitant]

REACTIONS (5)
  - CONDITION AGGRAVATED [None]
  - FEELING ABNORMAL [None]
  - FEELING HOT [None]
  - HOT FLUSH [None]
  - HYPERHIDROSIS [None]
